FAERS Safety Report 9109273 (Version 1)
Quarter: 2013Q1

REPORT INFORMATION
  Report Type: Spontaneous
  Country: US (occurrence: US)
  Receive Date: 20130222
  Receipt Date: 20130222
  Transmission Date: 20140127
  Serious: Yes (Death)
  Sender: FDA-Public Use
  Company Number: US-OTSUKA-US-2013-10186

PATIENT
  Age: 56 Year
  Sex: Male
  Weight: 81.63 kg

DRUGS (6)
  1. SAMSCA [Suspect]
     Indication: HYPONATRAEMIA
     Dosage: UNK, UNKNOWN
     Route: 065
     Dates: start: 201211, end: 20130122
  2. PRAVASTATIN [Concomitant]
  3. LASIX [Concomitant]
  4. POTASSIUM [Concomitant]
  5. PLAVIX [Concomitant]
  6. LORTAB [Concomitant]

REACTIONS (1)
  - Myocardial infarction [Fatal]
